FAERS Safety Report 5704567-2 (Version None)
Quarter: 2008Q2

REPORT INFORMATION
  Report Type: 
  Country: None (occurrence: None)
  Receive Date: 20080411
  Receipt Date: 20080411
  Transmission Date: 20081010
  Serious: Yes (Hospitalization)
  Sender: FDA-Public Use
  Company Number: None

PATIENT
  Sex: Female
  Weight: 59 kg

DRUGS (4)
  1. CISPLATIN [Suspect]
     Dosage: 83 MG
  2. DOXORUBICIN HYDROCHLORIDE [Suspect]
     Dosage: 75 MG
  3. TAXOL [Suspect]
     Dosage: 267 MG
  4. NEULASTA [Suspect]
     Dosage: 6 MG

REACTIONS (7)
  - ANOREXIA [None]
  - ASTHENIA [None]
  - DEHYDRATION [None]
  - DIZZINESS [None]
  - EMOTIONAL DISTRESS [None]
  - MUCOUS MEMBRANE DISORDER [None]
  - ORAL INTAKE REDUCED [None]
